FAERS Safety Report 9786007 (Version 2)
Quarter: 2014Q1

REPORT INFORMATION
  Report Type: Spontaneous
  Country: US (occurrence: US)
  Receive Date: 20131227
  Receipt Date: 20140108
  Transmission Date: 20141002
  Serious: Yes (Other)
  Sender: FDA-Public Use
  Company Number: US-PFIZER INC-2013367446

PATIENT
  Sex: Male

DRUGS (1)
  1. GLUCOTROL XL [Suspect]
     Dosage: 5 MG, UNK

REACTIONS (2)
  - Eye disorder [Unknown]
  - Depressed mood [Unknown]
